FAERS Safety Report 23165489 (Version 2)
Quarter: 2024Q2

REPORT INFORMATION
  Report Type: Spontaneous
  Country: US (occurrence: US)
  Receive Date: 20231109
  Receipt Date: 20240422
  Transmission Date: 20240716
  Serious: No
  Sender: FDA-Public Use
  Company Number: US-Appco Pharma LLC-2148033

PATIENT
  Age: 76 Year
  Sex: Female

DRUGS (1)
  1. MODAFINIL [Suspect]
     Active Substance: MODAFINIL
     Indication: Narcolepsy
     Route: 048

REACTIONS (2)
  - Drug ineffective [Recovered/Resolved]
  - Suspected product quality issue [Not Recovered/Not Resolved]
